FAERS Safety Report 18367411 (Version 3)
Quarter: 2021Q3

REPORT INFORMATION
  Report Type: Spontaneous
  Country: US (occurrence: US)
  Receive Date: 20201009
  Receipt Date: 20210726
  Transmission Date: 20211014
  Serious: Yes (Other)
  Sender: FDA-Public Use
  Company Number: US-JNJFOC-20201001161

PATIENT
  Age: 7 Decade
  Sex: Female

DRUGS (8)
  1. ELMIRON [Suspect]
     Active Substance: PENTOSAN POLYSULFATE SODIUM
     Indication: PAIN
     Dosage: 2 IN AM AND 1 IN PM
     Route: 048
     Dates: start: 20150311, end: 201907
  2. ASACOL [Concomitant]
     Active Substance: MESALAMINE
     Indication: COLITIS MICROSCOPIC
     Route: 065
     Dates: start: 1988
  3. MAXALT [Concomitant]
     Active Substance: RIZATRIPTAN BENZOATE
     Indication: MIGRAINE
     Route: 065
     Dates: start: 2013
  4. GRALISE [Concomitant]
     Active Substance: GABAPENTIN
     Indication: MIGRAINE
     Route: 065
     Dates: start: 2015
  5. ELMIRON [Suspect]
     Active Substance: PENTOSAN POLYSULFATE SODIUM
     Indication: BLADDER PAIN
     Dosage: 2 IN AM AND 1 IN PM
     Route: 048
     Dates: start: 20150215, end: 20190409
  6. AMITRIPTYLINE [Concomitant]
     Active Substance: AMITRIPTYLINE
     Indication: MIGRAINE
     Route: 065
     Dates: start: 1984
  7. SYNTHROID [Concomitant]
     Active Substance: LEVOTHYROXINE SODIUM
     Indication: THYROID DISORDER
     Route: 065
     Dates: start: 2008
  8. ELMIRON [Suspect]
     Active Substance: PENTOSAN POLYSULFATE SODIUM
     Indication: CYSTITIS INTERSTITIAL
     Route: 048
     Dates: start: 2015

REACTIONS (1)
  - Retinal degeneration [Not Recovered/Not Resolved]

NARRATIVE: CASE EVENT DATE: 2019
